FAERS Safety Report 7033105-X (Version None)
Quarter: 2010Q4

REPORT INFORMATION
  Report Type: 
  Country: None (occurrence: None)
  Receive Date: 20101007
  Receipt Date: 20100927
  Transmission Date: 20110411
  Serious: Yes (Hospitalization)
  Sender: FDA-Public Use
  Company Number: US-JNJFOC-20100708625

PATIENT
  Sex: Female

DRUGS (2)
  1. REMICADE [Suspect]
     Indication: PRODUCT USED FOR UNKNOWN INDICATION
     Route: 042
  2. TYSABRI [Concomitant]
     Route: 042

REACTIONS (4)
  - HIP FRACTURE [None]
  - MULTI-ORGAN FAILURE [None]
  - RENAL FAILURE [None]
  - UPPER LIMB FRACTURE [None]
